FAERS Safety Report 8372574-X (Version None)
Quarter: 2012Q2

REPORT INFORMATION
  Report Type: 
  Country: None (occurrence: None)
  Receive Date: 20120521
  Receipt Date: 20120509
  Transmission Date: 20120825
  Serious: Yes (Hospitalization)
  Sender: FDA-Public Use
  Company Number: US-VERTEX PHARMACEUTICALS INC.-AE-2012-006817

PATIENT
  Sex: Male

DRUGS (3)
  1. PEGASYS [Concomitant]
     Indication: HEPATITIS C
     Dates: start: 20120307, end: 20120323
  2. INCIVEK [Suspect]
     Indication: HEPATITIS C
     Dates: start: 20120307, end: 20120323
  3. RIBAVIRIN [Concomitant]
     Indication: HEPATITIS C
     Dates: start: 20120307, end: 20120323

REACTIONS (4)
  - MENTAL DISORDER [None]
  - CONFUSIONAL STATE [None]
  - FATIGUE [None]
  - PERICARDIAL EFFUSION [None]
